FAERS Safety Report 8809272 (Version 1)
Quarter: 2012Q4

REPORT INFORMATION
  Report Type: 
  Country: US (occurrence: US)
  Receive Date: 20120926
  Receipt Date: 20120926
  Transmission Date: 20130627
  Serious: Yes (Hospitalization)
  Sender: FDA-Public Use
  Company Number: US-INCYTE CORPORATION-2012IN001798

PATIENT
  Age: 65 Year
  Sex: Male

DRUGS (3)
  1. JAKAFI [Suspect]
     Indication: MYELOFIBROSIS
     Dosage: 10 mg, bid
     Route: 048
  2. LOVENOX [Suspect]
  3. HYDROCODONE [Concomitant]

REACTIONS (1)
  - Post procedural haemorrhage [Unknown]
